FAERS Safety Report 15006614 (Version 1)
Quarter: 2018Q2

REPORT INFORMATION
  Report Type: Report from Study
  Country: US (occurrence: US)
  Receive Date: 20180613
  Receipt Date: 20180613
  Transmission Date: 20180711
  Serious: No
  Sender: FDA-Public Use
  Company Number: US-US WORLDMEDS, LLC-USW201710-001417

PATIENT
  Age: 54 Year
  Sex: Female
  Weight: 56.69 kg

DRUGS (5)
  1. ESTROGEN [Concomitant]
     Active Substance: ESTROGENS
     Indication: HOT FLUSH
  2. APOKYN [Suspect]
     Active Substance: APOMORPHINE HYDROCHLORIDE
     Indication: PARKINSON^S DISEASE
     Dates: start: 20170918
  3. AZILCET [Concomitant]
     Indication: PARKINSON^S DISEASE
  4. TIGAN [Concomitant]
     Active Substance: TRIMETHOBENZAMIDE HYDROCHLORIDE
  5. CARBIDOPA/LEVODOPA [Concomitant]
     Active Substance: CARBIDOPA\LEVODOPA
     Indication: PARKINSON^S DISEASE

REACTIONS (11)
  - Fatigue [Recovered/Resolved]
  - Hot flush [Recovering/Resolving]
  - Rash pruritic [Recovering/Resolving]
  - Hyperhidrosis [Recovered/Resolved]
  - Disorientation [Recovered/Resolved]
  - Blood pressure decreased [Recovered/Resolved]
  - Hypertension [Recovered/Resolved]
  - Vomiting [Recovered/Resolved]
  - Panic attack [Recovered/Resolved]
  - Social avoidant behaviour [Recovered/Resolved]
  - Anxiety [Recovering/Resolving]

NARRATIVE: CASE EVENT DATE: 20170918
